FAERS Safety Report 22265090 (Version 1)
Quarter: 2023Q2

REPORT INFORMATION
  Report Type: Spontaneous
  Country: US (occurrence: US)
  Receive Date: 20230428
  Receipt Date: 20230428
  Transmission Date: 20230722
  Serious: No
  Sender: FDA-Public Use
  Company Number: US-PFIZER INC-202300168799

PATIENT
  Age: 65 Year
  Sex: Male
  Weight: 92.53 kg

DRUGS (4)
  1. PAXLOVID [Suspect]
     Active Substance: NIRMATRELVIR\RITONAVIR
     Indication: COVID-19 treatment
     Dosage: [PF-07321332 300 MG]/[RITONAVIR 100 MG]; 2X/DAY
     Dates: start: 202301, end: 202301
  2. PAROXETINE [Concomitant]
     Active Substance: PAROXETINE
     Dosage: 1 DF, 1X/DAY
  3. BUPROPION HYDROCHLORIDE XL [Concomitant]
     Active Substance: BUPROPION HYDROCHLORIDE
     Dosage: 300 MG, 1X/DAY
  4. MONTELUKAST AUROBINDO [Concomitant]
     Dosage: 10 MG, 1X/DAY

REACTIONS (1)
  - Therapeutic product effect incomplete [Unknown]
